FAERS Safety Report 21410779 (Version 1)
Quarter: 2022Q4

REPORT INFORMATION
  Report Type: Spontaneous
  Country: US (occurrence: None)
  Receive Date: 20221004
  Receipt Date: 20221004
  Transmission Date: 20230113
  Serious: Yes (Death)
  Sender: FDA-Public Use
  Company Number: None

PATIENT
  Age: 81 Year
  Sex: Male
  Weight: 49.5 kg

DRUGS (18)
  1. REPATHA [Suspect]
     Active Substance: EVOLOCUMAB
     Indication: Hyperlipidaemia
     Dates: start: 20201112, end: 20221003
  2. ATORVASTATIN [Concomitant]
     Active Substance: ATORVASTATIN
  3. OMEPRAZOLE [Concomitant]
     Active Substance: OMEPRAZOLE
  4. METFORMIN HYDROCHLORIDE [Concomitant]
     Active Substance: METFORMIN HYDROCHLORIDE
  5. ASPIRIN [Concomitant]
     Active Substance: ASPIRIN
  6. JARDIANCE [Concomitant]
     Active Substance: EMPAGLIFLOZIN
  7. vitamin d 2000 units [Concomitant]
  8. PIOGLITAZONE [Concomitant]
     Active Substance: PIOGLITAZONE
  9. prandin 1mg [Concomitant]
  10. VICTOZA [Concomitant]
     Active Substance: LIRAGLUTIDE
  11. prolia 60mg/1ml [Concomitant]
  12. align 4mg [Concomitant]
  13. TAMSULOSIN [Concomitant]
     Active Substance: TAMSULOSIN
  14. nitrostat 0.3mg [Concomitant]
  15. VITAMINS [Concomitant]
     Active Substance: VITAMINS
  16. ferrous sulfate 324mg [Concomitant]
  17. ONDANSETRON [Concomitant]
     Active Substance: ONDANSETRON
  18. FAMOTIDINE [Concomitant]
     Active Substance: FAMOTIDINE

REACTIONS (1)
  - Death [None]

NARRATIVE: CASE EVENT DATE: 20221003
